FAERS Safety Report 14541717 (Version 2)
Quarter: 2018Q2

REPORT INFORMATION
  Report Type: Spontaneous
  Country: SE (occurrence: SE)
  Receive Date: 20180216
  Receipt Date: 20180523
  Transmission Date: 20180711
  Serious: Yes (Other)
  Sender: FDA-Public Use
  Company Number: SE-TEVA-2018-SE-858002

PATIENT
  Age: 68 Year
  Sex: Female

DRUGS (5)
  1. THERALEN [Concomitant]
     Active Substance: TRIMEPRAZINE
     Dates: start: 20171113
  2. INSULIN [Concomitant]
     Active Substance: INSULIN NOS
  3. AMIMOX [Suspect]
     Active Substance: AMOXICILLIN
     Indication: DEVICE RELATED INFECTION
     Route: 065
     Dates: start: 20171013
  4. RIMACTAN [Suspect]
     Active Substance: RIFAMPIN
     Indication: DEVICE RELATED INFECTION
     Dates: start: 20171013
  5. CIPROFLOXACIN. [Suspect]
     Active Substance: CIPROFLOXACIN
     Indication: DEVICE RELATED INFECTION
     Route: 065
     Dates: start: 20171013

REACTIONS (3)
  - Mouth ulceration [Unknown]
  - Oral mucosal erythema [Unknown]
  - Rash [Unknown]

NARRATIVE: CASE EVENT DATE: 20171116
